FAERS Safety Report 8587121-7 (Version None)
Quarter: 2012Q3

REPORT INFORMATION
  Report Type: 
  Country: None (occurrence: None)
  Receive Date: 20120810
  Receipt Date: 20111202
  Transmission Date: 20120928
  Serious: No
  Sender: FDA-Public Use
  Company Number: US-ASTRAZENECA-2011SE31707

PATIENT
  Age: 33 Year
  Sex: Male

DRUGS (6)
  1. SEROQUEL [Suspect]
     Indication: BIPOLAR I DISORDER
     Route: 048
  2. SEROQUEL [Suspect]
     Route: 048
  3. SEROQUEL [Suspect]
     Route: 048
  4. SEROQUEL [Suspect]
     Indication: BIPOLAR II DISORDER
     Route: 048
  5. SEROQUEL [Suspect]
     Route: 048
  6. SEROQUEL [Suspect]
     Route: 048

REACTIONS (5)
  - THERAPEUTIC RESPONSE UNEXPECTED [None]
  - LIBIDO DISORDER [None]
  - DRUG DOSE OMISSION [None]
  - INSOMNIA [None]
  - HYPERSOMNIA [None]
